FAERS Safety Report 5953192-7 (Version None)
Quarter: 2008Q4

REPORT INFORMATION
  Report Type: 
  Country: None (occurrence: None)
  Receive Date: 20081114
  Receipt Date: 20081112
  Transmission Date: 20090506
  Serious: Yes (Other)
  Sender: FDA-Public Use
  Company Number: US-BAYER-200813960BCC

PATIENT
  Age: 41 Year
  Sex: Male
  Weight: 84 kg

DRUGS (1)
  1. ALEVE (CAPLET) [Suspect]
     Indication: PLANTAR FASCIITIS
     Dosage: TOTAL DAILY DOSE: 220 MG  UNIT DOSE: 220 MG
     Route: 048
     Dates: start: 20080801, end: 20080925

REACTIONS (6)
  - ANAPHYLACTIC SHOCK [None]
  - BLINDNESS TRANSIENT [None]
  - BLOOD PRESSURE DIASTOLIC DECREASED [None]
  - FEELING HOT [None]
  - FLUSHING [None]
  - PRURITUS GENERALISED [None]
